FAERS Safety Report 6597914-3 (Version None)
Quarter: 2010Q1

REPORT INFORMATION
  Report Type: 
  Country: None (occurrence: None)
  Receive Date: 20100223
  Receipt Date: 20091209
  Transmission Date: 20100710
  Serious: Yes (Other)
  Sender: FDA-Public Use
  Company Number: US-ALLERGAN-0916967US

PATIENT
  Age: 24 Year
  Sex: Female

DRUGS (5)
  1. BOTOX [Suspect]
     Indication: MUSCLE SPASTICITY
     Dosage: 300 UNITS, SINGLE
     Route: 030
     Dates: start: 20080926, end: 20080926
  2. BOTOX [Suspect]
     Dosage: 300 UNITS, SINGLE
     Route: 030
     Dates: start: 20090402, end: 20090402
  3. BOTOX [Suspect]
     Dosage: 200 UNITS, SINGLE
     Dates: start: 20091027, end: 20091027
  4. BACLOFEN [Concomitant]
  5. NEURONTIN [Concomitant]

REACTIONS (3)
  - ASTHENIA [None]
  - DYSPHAGIA [None]
  - PAIN IN EXTREMITY [None]
